FAERS Safety Report 5274012-2 (Version None)
Quarter: 2007Q1

REPORT INFORMATION
  Report Type: 
  Country: None (occurrence: None)
  Receive Date: 20070323
  Receipt Date: 20070315
  Transmission Date: 20070707
  Serious: Yes (Other)
  Sender: FDA-Public Use
  Company Number: BE-GLAXOSMITHKLINE-B0463078A

PATIENT
  Age: 30 Year
  Sex: Female

DRUGS (2)
  1. ZYBAN [Suspect]
  2. NO CONCURRENT MEDICATION [Concomitant]

REACTIONS (2)
  - HALLUCINATION [None]
  - PALPITATIONS [None]
